FAERS Safety Report 6501691-1 (Version None)
Quarter: 2009Q4

REPORT INFORMATION
  Report Type: 
  Country: None (occurrence: None)
  Receive Date: 20091216
  Receipt Date: 20090611
  Transmission Date: 20100525
  Serious: No
  Sender: FDA-Public Use
  Company Number: US-AMGEN-KDL351245

PATIENT
  Sex: Male

DRUGS (5)
  1. ARANESP [Suspect]
     Indication: MYELODYSPLASTIC SYNDROME
  2. LUPRON [Concomitant]
  3. FOSAMAX [Concomitant]
  4. NEUPOGEN [Concomitant]
     Indication: CHEMOTHERAPY
     Dates: start: 20080101, end: 20090101
  5. DACOGEN [Concomitant]

REACTIONS (2)
  - HAEMOGLOBIN DECREASED [None]
  - LIP SWELLING [None]
